FAERS Safety Report 11654451 (Version 1)
Quarter: 2015Q4

REPORT INFORMATION
  Report Type: Spontaneous
  Country: IT (occurrence: IT)
  Receive Date: 20151023
  Receipt Date: 20151023
  Transmission Date: 20160304
  Serious: Yes (Other)
  Sender: FDA-Public Use
  Company Number: IT-AMGEN-ITASP2015107090

PATIENT
  Age: 49 Year
  Sex: Female

DRUGS (6)
  1. XGEVA [Suspect]
     Active Substance: DENOSUMAB
     Indication: BREAST CANCER METASTATIC
     Dosage: ONE POSOLOGIC UNIT, CYCLICAL
     Route: 042
     Dates: start: 20150608
  2. ANTRA                              /00661201/ [Concomitant]
     Active Substance: OMEPRAZOLE
  3. TAXOTERE [Suspect]
     Active Substance: DOCETAXEL
     Indication: BREAST CANCER METASTATIC
     Dosage: 120 MG, CYCLICAL
     Route: 042
     Dates: start: 20150514, end: 20150903
  4. HERCEPTIN [Suspect]
     Active Substance: TRASTUZUMAB
     Indication: BREAST CANCER METASTATIC
     Dosage: 300 MG, CYCLICAL
     Route: 042
     Dates: start: 20150514, end: 20150903
  5. PERJETA [Suspect]
     Active Substance: PERTUZUMAB
     Indication: BREAST CANCER METASTATIC
     Dosage: 420 MG, CYCLICAL
     Route: 042
     Dates: start: 20150608, end: 20150903
  6. COTAREG [Concomitant]
     Active Substance: HYDROCHLOROTHIAZIDE\VALSARTAN

REACTIONS (5)
  - Stomatitis [Recovering/Resolving]
  - Diarrhoea [Recovering/Resolving]
  - Anaemia [Recovering/Resolving]
  - Hypertransaminasaemia [Recovering/Resolving]
  - Neutropenia [Recovering/Resolving]

NARRATIVE: CASE EVENT DATE: 20150612
